FAERS Safety Report 16049858 (Version 1)
Quarter: 2019Q1

REPORT INFORMATION
  Report Type: Spontaneous
  Country: DE (occurrence: DE)
  Receive Date: 20190307
  Receipt Date: 20190307
  Transmission Date: 20190418
  Serious: Yes (Hospitalization)
  Sender: FDA-Public Use
  Company Number: DE-ROCHE-2279135

PATIENT
  Age: 60 Year
  Sex: Male

DRUGS (3)
  1. LEVODOPA [Suspect]
     Active Substance: LEVODOPA
     Indication: EYE OEDEMA
     Route: 065
  2. LUCENTIS [Suspect]
     Active Substance: RANIBIZUMAB
     Indication: EYE OEDEMA
     Route: 065
     Dates: start: 20111103
  3. AVASTIN [Suspect]
     Active Substance: BEVACIZUMAB
     Indication: EYE OEDEMA
     Route: 065
     Dates: start: 20110405, end: 20151015

REACTIONS (3)
  - Parkinson^s disease [Not Recovered/Not Resolved]
  - Arrhythmia [Unknown]
  - Eye oedema [Unknown]

NARRATIVE: CASE EVENT DATE: 2018
